FAERS Safety Report 24700189 (Version 2)
Quarter: 2024Q4

REPORT INFORMATION
  Report Type: Spontaneous
  Country: US (occurrence: US)
  Receive Date: 20241205
  Receipt Date: 20241211
  Transmission Date: 20250114
  Serious: Yes (Other)
  Sender: RANBAXY
  Company Number: US-SUN PHARMACEUTICAL INDUSTRIES LTD-2024R1-482741

PATIENT
  Age: 70 Year
  Sex: Male

DRUGS (2)
  1. TOBRAMYCIN [Suspect]
     Active Substance: TOBRAMYCIN\TOBRAMYCIN SULFATE
     Indication: Arthralgia
     Dosage: 3.6 GRAM
     Route: 065
  2. VANCOMYCIN HYDROCHLORIDE [Concomitant]
     Active Substance: VANCOMYCIN HYDROCHLORIDE
     Indication: Arthralgia
     Dosage: 4 GRAM
     Route: 065

REACTIONS (1)
  - Nephropathy toxic [Recovering/Resolving]
